FAERS Safety Report 24168544 (Version 1)
Quarter: 2024Q3

REPORT INFORMATION
  Report Type: Other
  Country: LK (occurrence: LK)
  Receive Date: 20240802
  Receipt Date: 20240802
  Transmission Date: 20241017
  Serious: Yes (Hospitalization, Other)
  Sender: GENUS LIFESCIENCES
  Company Number: LK-Genus_Lifesciences-USA-POI0580202400142

PATIENT
  Age: 67 Year
  Sex: Male

DRUGS (5)
  1. YOSPRALA [Suspect]
     Active Substance: ASPIRIN\OMEPRAZOLE
     Indication: Dyspepsia
     Route: 048
     Dates: start: 2024
  2. CORIANDER OIL [Concomitant]
     Active Substance: CORIANDER OIL
     Indication: Prophylaxis
  3. Coscinium fenestratum [Concomitant]
     Indication: Prophylaxis
  4. GINGER [Concomitant]
     Active Substance: GINGER
     Indication: Prophylaxis
  5. Alpinia calcarata [Concomitant]
     Indication: Prophylaxis

REACTIONS (3)
  - Insulin autoimmune syndrome [Recovered/Resolved]
  - Syncope [Recovered/Resolved]
  - Fall [Recovered/Resolved]

NARRATIVE: CASE EVENT DATE: 20240101
